FAERS Safety Report 9031420 (Version 2)
Quarter: 2013Q1

REPORT INFORMATION
  Report Type: Report from Study
  Country: CA (occurrence: CA)
  Receive Date: 20130124
  Receipt Date: 20130328
  Transmission Date: 20140127
  Serious: Yes (Other)
  Sender: FDA-Public Use
  Company Number: CA-ABBOTT-13P-028-1039296-00

PATIENT
  Age: 47 None
  Sex: Female

DRUGS (1)
  1. HUMIRA [Suspect]
     Indication: CROHN^S DISEASE
     Route: 058
     Dates: start: 20100129, end: 201207

REACTIONS (5)
  - Gastrointestinal anastomotic leak [Unknown]
  - Intestinal resection [Unknown]
  - Malaise [Unknown]
  - Ileitis [Unknown]
  - Polyp [Unknown]
